FAERS Safety Report 6204652-5 (Version None)
Quarter: 2009Q2

REPORT INFORMATION
  Report Type: 
  Country: None (occurrence: None)
  Receive Date: 20090527
  Receipt Date: 20090515
  Transmission Date: 20091009
  Serious: Yes (Death, Hospitalization, Other)
  Sender: FDA-Public Use
  Company Number: IE-PFIZER INC-2009216869

PATIENT
  Age: 58 Year

DRUGS (2)
  1. LIPITOR [Suspect]
     Route: 048
  2. FUSIDIC ACID [Interacting]

REACTIONS (5)
  - DRUG INTERACTION [None]
  - MALAISE [None]
  - MYALGIA [None]
  - RENAL FAILURE ACUTE [None]
  - RHABDOMYOLYSIS [None]
